FAERS Safety Report 4386660-2 (Version None)
Quarter: 2004Q2

REPORT INFORMATION
  Report Type: 
  Country: None (occurrence: None)
  Receive Date: 20040623
  Receipt Date: 20040611
  Transmission Date: 20050107
  Serious: Yes (Life-Threatening, Hospitalization)
  Sender: FDA-Public Use
  Company Number: 04P-151-0263539-00

PATIENT
  Age: 90 Year
  Sex: Female
  Weight: 40 kg

DRUGS (16)
  1. ISOPTIN [Suspect]
     Indication: ATRIAL FIBRILLATION
     Dosage: 120 MG, 1 IN 1 D, PER ORAL
     Route: 048
     Dates: end: 20040515
  2. ISOPTIN [Suspect]
     Indication: TACHYCARDIA
     Dosage: 120 MG, 1 IN 1 D, PER ORAL
     Route: 048
     Dates: end: 20040515
  3. ISOPTIN [Suspect]
     Indication: ATRIAL FIBRILLATION
     Dosage: 120 MG, 1 IN 1 D, PER ORAL
     Route: 048
     Dates: start: 20040516
  4. ISOPTIN [Suspect]
     Indication: TACHYCARDIA
     Dosage: 120 MG, 1 IN 1 D, PER ORAL
     Route: 048
     Dates: start: 20040516
  5. METOPROLOL (METOPROLOL) [Suspect]
     Indication: ATRIAL FIBRILLATION
     Dosage: 50 MG, 3 IN 1 D, PER ORAL
     Route: 048
     Dates: start: 20040513, end: 20040514
  6. METOPROLOL (METOPROLOL) [Suspect]
     Indication: TACHYCARDIA
     Dosage: 50 MG, 3 IN 1 D, PER ORAL
     Route: 048
     Dates: start: 20040513, end: 20040514
  7. BISOPROLOL FUMARATE [Suspect]
     Indication: ATRIAL FIBRILLATION
     Dosage: 2.5 MG, 1 IN 1 D, PER ORAL
     Route: 048
  8. BISOPROLOL FUMARATE [Suspect]
     Indication: TACHYCARDIA
     Dosage: 2.5 MG, 1 IN 1 D, PER ORAL
     Route: 048
  9. NICORANDIL [Concomitant]
  10. TORSEMIDE [Concomitant]
  11. ACETAMINOPHEN [Concomitant]
  12. MEROPENEM [Concomitant]
  13. HEPARIN SODIUM [Concomitant]
  14. CALCIUM EFF [Concomitant]
  15. VIDE 3 [Concomitant]
  16. MORPHINE [Concomitant]

REACTIONS (17)
  - ARTERIOPATHIC DISEASE [None]
  - ARTHRITIS INFECTIVE [None]
  - ATRIAL FIBRILLATION [None]
  - BRADYCARDIA [None]
  - BUNDLE BRANCH BLOCK LEFT [None]
  - DRUG INTERACTION [None]
  - ELECTROCARDIOGRAM QRS COMPLEX PROLONGED [None]
  - LEFT VENTRICULAR FAILURE [None]
  - LUNG DISORDER [None]
  - NECROSIS [None]
  - OBSTRUCTION [None]
  - OSTEOMYELITIS [None]
  - POST PROCEDURAL COMPLICATION [None]
  - PULMONARY EMBOLISM [None]
  - SCAR [None]
  - SUPERINFECTION [None]
  - TACHYPNOEA [None]
